FAERS Safety Report 6302127-6 (Version None)
Quarter: 2009Q3

REPORT INFORMATION
  Report Type: 
  Country: None (occurrence: None)
  Receive Date: 20090807
  Receipt Date: 20090727
  Transmission Date: 20100115
  Serious: Yes (Other)
  Sender: FDA-Public Use
  Company Number: CA-GENENTECH-288068

PATIENT
  Age: 29 Year
  Sex: Female

DRUGS (1)
  1. ACTIVASE [Suspect]
     Indication: ISCHAEMIC STROKE
     Dosage: 46 MG, UNK
     Route: 042

REACTIONS (3)
  - EMBOLISM [None]
  - RECTAL HAEMORRHAGE [None]
  - RENAL INFARCT [None]
